FAERS Safety Report 13087608 (Version 1)
Quarter: 2017Q1

REPORT INFORMATION
  Report Type: Spontaneous
  Country: US (occurrence: US)
  Receive Date: 20170105
  Receipt Date: 20170105
  Transmission Date: 20170428
  Serious: No
  Sender: FDA-Public Use
  Company Number: US-ELI_LILLY_AND_COMPANY-US201612007519

PATIENT
  Sex: Female

DRUGS (2)
  1. TRULICITY [Suspect]
     Active Substance: DULAGLUTIDE
     Indication: TYPE 2 DIABETES MELLITUS
     Dosage: UNK, WEEKLY (1/W)
     Route: 065
  2. METFORMIN [Concomitant]
     Active Substance: METFORMIN HYDROCHLORIDE
     Dosage: UNK, UNKNOWN
     Route: 065

REACTIONS (12)
  - Dizziness [Unknown]
  - Vibratory sense increased [Unknown]
  - Diarrhoea [Unknown]
  - Cerebral disorder [Unknown]
  - Insomnia [Unknown]
  - Dyspnoea [Unknown]
  - Paraesthesia [Unknown]
  - Vomiting [Unknown]
  - Palpitations [Unknown]
  - Muscle spasms [Unknown]
  - Tremor [Unknown]
  - Reaction to preservatives [Unknown]
